FAERS Safety Report 5655081-4 (Version None)
Quarter: 2008Q1

REPORT INFORMATION
  Report Type: 
  Country: None (occurrence: None)
  Receive Date: 20080307
  Receipt Date: 20080110
  Transmission Date: 20080703
  Serious: No
  Sender: FDA-Public Use
  Company Number: A0696311A

PATIENT
  Age: 26 Year
  Sex: Female

DRUGS (2)
  1. REQUIP [Suspect]
     Indication: RESTLESS LEGS SYNDROME
     Dosage: 1MG PER DAY
     Route: 048
     Dates: end: 20071101
  2. NO CONCURRENT MEDICATION [Concomitant]

REACTIONS (3)
  - MUSCLE SPASMS [None]
  - PAIN [None]
  - PARAESTHESIA [None]
